FAERS Safety Report 7203122-5 (Version None)
Quarter: 2010Q4

REPORT INFORMATION
  Report Type: 
  Country: None (occurrence: None)
  Receive Date: 20101229
  Receipt Date: 20101220
  Transmission Date: 20110411
  Serious: Yes (Hospitalization)
  Sender: FDA-Public Use
  Company Number: BE-ABBOTT-10P-013-0692916-00

PATIENT
  Sex: Female
  Weight: 52 kg

DRUGS (5)
  1. HUMIRA [Suspect]
     Indication: CROHN'S DISEASE
     Dosage: BASELINE
     Route: 058
     Dates: start: 20090224, end: 20090301
  2. HUMIRA [Suspect]
     Dates: end: 20101001
  3. HUMIRA [Suspect]
     Route: 058
     Dates: start: 20101019, end: 20101120
  4. OMEPRAZOLE [Concomitant]
     Indication: ABDOMINAL PAIN UPPER
     Dates: start: 20091110
  5. IMODIUM [Concomitant]
     Indication: DIARRHOEA
     Dates: start: 20091110

REACTIONS (1)
  - CEREBROVASCULAR ACCIDENT [None]
